FAERS Safety Report 8986094 (Version 1)
Quarter: 2012Q4

REPORT INFORMATION
  Report Type: Spontaneous
  Country: FR (occurrence: None)
  Receive Date: 20120928
  Receipt Date: 20120928
  Transmission Date: 20130627
  Serious: Yes (Hospitalization)
  Sender: FDA-Public Use
  Company Number: 218873

PATIENT
  Age: 61 Year
  Sex: Male

DRUGS (16)
  1. INNOHEP [Suspect]
     Route: 058
     Dates: start: 20111107
  2. VELCADE [Suspect]
     Dates: start: 20111107
  3. VELCADE [Suspect]
     Dates: start: 20111129
  4. VELCADE [Suspect]
     Dates: start: 20120120
  5. VELCADE [Suspect]
     Dates: start: 20120601
  6. REVLIMID [Suspect]
     Dates: start: 20111129, end: 20111204
  7. REVLIMID [Suspect]
     Dates: start: 20111102
  8. DEXAMETHASONE [Suspect]
     Dates: start: 20111107
  9. DEXAMETHASONE [Suspect]
     Dates: start: 20111129
  10. DEXAMETHASONE [Suspect]
     Dates: start: 20120120
  11. DEXAMETHASONE [Suspect]
     Dates: start: 20120601
  12. BACTRIM [Suspect]
     Dosage: 2400 MG
     Dates: start: 20111107
  13. ZELITREX [Suspect]
     Dates: start: 20111210, end: 20111223
  14. ZELITREX [Suspect]
     Dates: start: 20111107
  15. AMOXICILLIN [Suspect]
     Dates: start: 20111107
  16. LEDERFOLINE [Suspect]
     Dosage: 1 IN 1 WK
     Dates: start: 20111107

REACTIONS (8)
  - Rash maculo-papular [None]
  - General physical health deterioration [None]
  - Pyrexia [None]
  - Face oedema [None]
  - Lip oedema [None]
  - Drug reaction with eosinophilia and systemic symptoms [None]
  - Diarrhoea [None]
  - Pancreatitis [None]
